FAERS Safety Report 16184348 (Version 1)
Quarter: 2019Q2

REPORT INFORMATION
  Report Type: Spontaneous
  Country: US (occurrence: US)
  Receive Date: 20190410
  Receipt Date: 20190410
  Transmission Date: 20190711
  Serious: Yes (Disabling)
  Sender: FDA-Public Use
  Company Number: None

PATIENT
  Age: 78 Year
  Sex: Female
  Weight: 64.35 kg

DRUGS (12)
  1. FEMARA [Concomitant]
     Active Substance: LETROZOLE
  2. VITAMIN C [Concomitant]
     Active Substance: ASCORBIC ACID
  3. RESVERATROL [Concomitant]
     Active Substance: DIETARY SUPPLEMENT\RESVERATROL
  4. FEMARA [Suspect]
     Active Substance: LETROZOLE
     Indication: ADJUVANT THERAPY
     Dosage: ?          QUANTITY:1 TABLET(S);?
     Route: 048
     Dates: start: 20190101
  5. CALCIUM [Concomitant]
     Active Substance: CALCIUM
  6. UBIQUINOL [Concomitant]
     Active Substance: UBIQUINOL
  7. VITAMIN B12 [Concomitant]
     Active Substance: CYANOCOBALAMIN
  8. VAGIFEM [Concomitant]
     Active Substance: ESTRADIOL
  9. VITAMIN D [Concomitant]
     Active Substance: VITAMIN D NOS
  10. FISH OIL [Concomitant]
     Active Substance: FISH OIL
  11. TURMERIC [Concomitant]
     Active Substance: HERBALS\TURMERIC
  12. VITAMIN/MINERAL TABLET [Concomitant]

REACTIONS (12)
  - Neuralgia [None]
  - Myalgia [None]
  - Alopecia [None]
  - Insomnia [None]
  - Drug ineffective [None]
  - Depression [None]
  - Middle insomnia [None]
  - Muscular weakness [None]
  - Trigger finger [None]
  - Amnesia [None]
  - Pain in extremity [None]
  - Grip strength decreased [None]
